FAERS Safety Report 12137180 (Version 1)
Quarter: 2016Q1

REPORT INFORMATION
  Report Type: Spontaneous
  Country: NL (occurrence: NL)
  Receive Date: 20160302
  Receipt Date: 20160302
  Transmission Date: 20160526
  Serious: Yes (Hospitalization)
  Sender: FDA-Public Use
  Company Number: NL-CONCORDIA PHARMACEUTICALS INC.-CO-PL-NL-2016-070

PATIENT
  Age: 51 Year
  Sex: Female

DRUGS (1)
  1. PLAQUENIL [Suspect]
     Active Substance: HYDROXYCHLOROQUINE SULFATE
     Indication: PSORIATIC ARTHROPATHY
     Route: 048
     Dates: start: 2015, end: 20151109

REACTIONS (2)
  - Rash papular [None]
  - Dyspnoea [None]

NARRATIVE: CASE EVENT DATE: 20151108
